FAERS Safety Report 9807602 (Version 1)
Quarter: 2014Q1

REPORT INFORMATION
  Report Type: Spontaneous
  Country: US (occurrence: US)
  Receive Date: 20140110
  Receipt Date: 20140110
  Transmission Date: 20141002
  Serious: No
  Sender: FDA-Public Use
  Company Number: US-SANOFI-AVENTIS-2013SA052093

PATIENT
  Sex: Female

DRUGS (4)
  1. PLAVIX [Suspect]
  2. VALSARTAN [Concomitant]
  3. NEBIVOLOL [Concomitant]
  4. VICODIN [Concomitant]

REACTIONS (3)
  - Fall [Not Recovered/Not Resolved]
  - Concussion [Not Recovered/Not Resolved]
  - Blood pressure systolic increased [Not Recovered/Not Resolved]
